FAERS Safety Report 25424982 (Version 1)
Quarter: 2025Q2

REPORT INFORMATION
  Report Type: Spontaneous
  Country: CA (occurrence: CA)
  Receive Date: 20250611
  Receipt Date: 20250611
  Transmission Date: 20250717
  Serious: Yes (Life-Threatening, Hospitalization, Other)
  Sender: PFIZER
  Company Number: CA-PFIZER INC-202500117821

PATIENT
  Age: 60 Year
  Sex: Male
  Weight: 80 kg

DRUGS (8)
  1. HYDROMORPHONE HYDROCHLORIDE [Suspect]
     Active Substance: HYDROMORPHONE HYDROCHLORIDE
     Indication: Pain
     Route: 058
  2. IBUPROFEN [Suspect]
     Active Substance: IBUPROFEN
     Indication: Pain
     Dosage: 200 MG, 4X/DAY (FOR 6 DAYS)
     Route: 048
  3. ACETAMINOPHEN [Concomitant]
     Active Substance: ACETAMINOPHEN
  4. DILTIAZEM [Concomitant]
     Active Substance: DILTIAZEM
  5. HYDROCHLOROTHIAZIDE [Concomitant]
     Active Substance: HYDROCHLOROTHIAZIDE
  6. ONDANSETRON [Concomitant]
     Active Substance: ONDANSETRON
  7. ROSUVASTATIN [Concomitant]
     Active Substance: ROSUVASTATIN
     Route: 058
  8. TELMISARTAN [Concomitant]
     Active Substance: TELMISARTAN

REACTIONS (5)
  - Acute kidney injury [Recovering/Resolving]
  - Airway compression [Recovering/Resolving]
  - Ileus [Recovering/Resolving]
  - Intra-abdominal pressure increased [Recovering/Resolving]
  - Oxygen saturation decreased [Recovering/Resolving]
